FAERS Safety Report 25705412 (Version 1)
Quarter: 2025Q3

REPORT INFORMATION
  Report Type: Spontaneous
  Country: US (occurrence: US)
  Receive Date: 20250820
  Receipt Date: 20250820
  Transmission Date: 20251020
  Serious: Yes (Disabling)
  Sender: DEXCEL LTD.
  Company Number: None

PATIENT
  Age: 4 Decade

DRUGS (1)
  1. CHLORHEXIDINE GLUCONATE\ISOPROPYL ALCOHOL [Suspect]
     Active Substance: CHLORHEXIDINE GLUCONATE\ISOPROPYL ALCOHOL

REACTIONS (4)
  - Pupil fixed [Recovering/Resolving]
  - Corneal decompensation [Recovering/Resolving]
  - Cataract subcapsular [Recovering/Resolving]
  - Accidental exposure to product [Recovering/Resolving]
